FAERS Safety Report 10066997 (Version 1)
Quarter: 2014Q2

REPORT INFORMATION
  Report Type: Spontaneous
  Country: US (occurrence: US)
  Receive Date: 20140409
  Receipt Date: 20140409
  Transmission Date: 20141212
  Serious: Yes (Hospitalization)
  Sender: FDA-Public Use
  Company Number: US-BEH-2014041568

PATIENT
  Age: 62 Year
  Sex: Female

DRUGS (1)
  1. BERINERT [Suspect]
     Route: 042
     Dates: start: 20140108

REACTIONS (3)
  - Renal failure [Unknown]
  - Dehydration [Unknown]
  - Hypotension [Unknown]
